FAERS Safety Report 10137749 (Version 1)
Quarter: 2014Q2

REPORT INFORMATION
  Report Type: Spontaneous
  Country: US (occurrence: None)
  Receive Date: 20140425
  Receipt Date: 20140425
  Transmission Date: 20141212
  Serious: Yes (Hospitalization)
  Sender: FDA-Public Use
  Company Number: UTC-047324

PATIENT
  Age: 63 Year
  Sex: Female
  Weight: 81.65 kg

DRUGS (3)
  1. TYVASO [Suspect]
     Indication: PULMONARY ARTERIAL HYPERTENSION
     Dosage: 18-72 MG (4 IN 1 D)
     Route: 055
     Dates: start: 20110615
  2. ADCIRCA (TADALAFIL) [Concomitant]
  3. COUMADIN (WARFARIN SODIUM) [Concomitant]

REACTIONS (4)
  - Pneumonia [None]
  - Renal failure [None]
  - Therapy cessation [None]
  - Drug dose omission [None]
